FAERS Safety Report 10475217 (Version 1)
Quarter: 2014Q3

REPORT INFORMATION
  Report Type: Report from Study
  Country: US (occurrence: US)
  Receive Date: 20140925
  Receipt Date: 20140925
  Transmission Date: 20150326
  Serious: Yes (Other)
  Sender: FDA-Public Use
  Company Number: US-ROCHE-1425294

PATIENT
  Sex: Female
  Weight: 102 kg

DRUGS (8)
  1. CHERATUSSIN AC [Concomitant]
     Active Substance: CODEINE PHOSPHATE\GUAIFENESIN
     Route: 048
  2. CLOMID [Concomitant]
     Active Substance: CLOMIPHENE CITRATE
  3. AUGMENTIN [Concomitant]
     Active Substance: AMOXICILLIN\CLAVULANATE POTASSIUM
     Dosage: 875-125 MG
     Route: 048
  4. TOBRAMYCIN AND DEXAMETHASONE [Concomitant]
     Active Substance: DEXAMETHASONE\TOBRAMYCIN
     Route: 065
  5. LEVOTHYROXINE [Concomitant]
     Active Substance: LEVOTHYROXINE
     Route: 048
  6. NUVARING [Concomitant]
     Active Substance: ETHINYL ESTRADIOL\ETONOGESTREL
  7. NUTROPIN AQ [Suspect]
     Active Substance: SOMATROPIN
     Indication: GROWTH HORMONE DEFICIENCY
     Route: 058
  8. METFORMIN [Concomitant]
     Active Substance: METFORMIN HYDROCHLORIDE
     Route: 065

REACTIONS (29)
  - Nausea [Unknown]
  - Menstruation irregular [Unknown]
  - Thirst [Unknown]
  - Hot flush [Unknown]
  - Vision blurred [Unknown]
  - Sinusitis [Unknown]
  - Polyuria [Unknown]
  - Night sweats [Unknown]
  - Abortion spontaneous [Unknown]
  - Pregnancy [Unknown]
  - Ill-defined disorder [Unknown]
  - Hypoaesthesia [Unknown]
  - Anxiety [Unknown]
  - Rash [Unknown]
  - Fatigue [Unknown]
  - Vomiting [Unknown]
  - Convulsion [Unknown]
  - Headache [Unknown]
  - Fat tissue increased [Unknown]
  - Weight increased [Unknown]
  - Ear infection [Unknown]
  - Memory impairment [Unknown]
  - Depression [Unknown]
  - Polydipsia [Unknown]
  - Affect lability [Unknown]
  - Diplopia [Unknown]
  - Erythema [Unknown]
  - Dizziness [Unknown]
  - Gastrooesophageal reflux disease [Unknown]
